FAERS Safety Report 7053694-9 (Version None)
Quarter: 2010Q4

REPORT INFORMATION
  Report Type: 
  Country: None (occurrence: None)
  Receive Date: 20101020
  Receipt Date: 20101012
  Transmission Date: 20110411
  Serious: Yes (Hospitalization)
  Sender: FDA-Public Use
  Company Number: A0764874A

PATIENT
  Age: 69 Year
  Sex: Male
  Weight: 97.7 kg

DRUGS (6)
  1. AVANDIA [Suspect]
     Dosage: 4MG PER DAY
     Route: 048
     Dates: start: 20060824, end: 20070330
  2. COUMADIN [Concomitant]
  3. METFORMIN HCL [Concomitant]
  4. LASIX [Concomitant]
  5. LIPITOR [Concomitant]
  6. AMIODARONE HCL [Concomitant]

REACTIONS (3)
  - ATRIAL FIBRILLATION [None]
  - MYOCARDIAL INFARCTION [None]
  - TROPONIN INCREASED [None]
